FAERS Safety Report 23321675 (Version 1)
Quarter: 2023Q4

REPORT INFORMATION
  Report Type: Spontaneous
  Country: US (occurrence: US)
  Receive Date: 20231220
  Receipt Date: 20231220
  Transmission Date: 20240110
  Serious: No
  Sender: FDA-Public Use
  Company Number: US-GALDERMA-US2023012293

PATIENT

DRUGS (1)
  1. METRONIDAZOLE [Suspect]
     Active Substance: METRONIDAZOLE
     Indication: Acne
     Dosage: 1 DOSAGE FORM
     Route: 065

REACTIONS (2)
  - Drug ineffective for unapproved indication [Recovered/Resolved]
  - Product use in unapproved indication [Recovered/Resolved]
